FAERS Safety Report 16814039 (Version 2)
Quarter: 2019Q4

REPORT INFORMATION
  Report Type: Spontaneous
  Country: IT (occurrence: IT)
  Receive Date: 20190917
  Receipt Date: 20191009
  Transmission Date: 20200122
  Serious: Yes (Life-Threatening)
  Sender: FDA-Public Use
  Company Number: IT-UCBSA-2019038711

PATIENT
  Age: 67 Year
  Sex: Male
  Weight: 63 kg

DRUGS (22)
  1. BRILIQUE [Concomitant]
     Active Substance: TICAGRELOR
     Indication: INFARCTION
     Route: 048
     Dates: start: 20190702, end: 20190706
  2. KEPPRA [Suspect]
     Active Substance: LEVETIRACETAM
     Indication: OFF LABEL USE
  3. ZOPRANOL [Concomitant]
     Active Substance: ZOFENOPRIL
     Indication: INFARCTION
     Dosage: 7.5 MILLIGRAM
     Route: 048
     Dates: start: 20190702, end: 20190806
  4. TORVAST [Concomitant]
     Active Substance: ATORVASTATIN
     Indication: INFARCTION
     Dosage: 80 MILLIGRAM
     Route: 048
     Dates: start: 20190702, end: 20190806
  5. VIMPAT [Suspect]
     Active Substance: LACOSAMIDE
     Indication: OFF LABEL USE
  6. FENTANEST [FENTANYL] [Concomitant]
     Indication: PAIN
     Dosage: 0.1MG/2ML
     Route: 042
     Dates: start: 20190704, end: 20190806
  7. GARDENALE [PHENOBARBITAL SODIUM] [Suspect]
     Active Substance: PHENOBARBITAL SODIUM
     Indication: POST-ANOXIC MYOCLONUS
     Dosage: 200 MG DAILY
     Route: 048
     Dates: start: 20190705, end: 20190716
  8. ESMERON [Concomitant]
     Active Substance: ROCURONIUM BROMIDE
     Indication: ENDOTRACHEAL INTUBATION
     Dosage: 10MG/ML
     Route: 042
     Dates: start: 20190704, end: 20190709
  9. LASIX [Concomitant]
     Active Substance: FUROSEMIDE
     Indication: INFARCTION
     Route: 042
     Dates: start: 20190704, end: 20190719
  10. CLEXANE T [Concomitant]
     Active Substance: ENOXAPARIN SODIUM
     Indication: INFARCTION
     Route: 058
     Dates: start: 20190702, end: 20190720
  11. KETAMINA MOLTENI [Concomitant]
     Indication: PAIN
     Dosage: 50/ML
     Dates: start: 20190706, end: 20190707
  12. CARDIOASPIRIN [Concomitant]
     Active Substance: ASPIRIN
     Indication: INFARCTION
     Route: 048
     Dates: start: 20190702, end: 20190806
  13. KEPPRA [Suspect]
     Active Substance: LEVETIRACETAM
     Indication: OFF LABEL USE
  14. SELOKEN [METOPROLOL SUCCINATE] [Concomitant]
     Indication: INFARCTION
     Dosage: 150 MILLIGRAM
     Route: 048
     Dates: start: 20190702, end: 20190806
  15. GENTALYN [Concomitant]
     Active Substance: GENTAMICIN SULFATE
     Indication: BACTERIAL INFECTION
     Route: 042
     Dates: start: 20190704, end: 20190806
  16. AURANTIN [Concomitant]
     Active Substance: PHENYTOIN SODIUM
     Indication: MYOCLONUS
     Dosage: 250MG/5ML
     Route: 042
     Dates: start: 20190703, end: 20190709
  17. KEPPRA [Suspect]
     Active Substance: LEVETIRACETAM
     Indication: POST-ANOXIC MYOCLONUS
     Dosage: 3000 MG DAILY
     Route: 042
     Dates: start: 20190705, end: 20190719
  18. DINTOINA [Suspect]
     Active Substance: PHENYTOIN SODIUM
     Indication: POST-ANOXIC MYOCLONUS
     Dosage: 300 MG DAILY
     Route: 048
     Dates: start: 20190705, end: 20190712
  19. ANTRA [OMEPRAZOLE MAGNESIUM] [Concomitant]
     Indication: GASTRODUODENAL ULCER
     Route: 042
     Dates: start: 20190702, end: 20190713
  20. PROPOFOL B. BRAUN [Concomitant]
     Active Substance: PROPOFOL
     Indication: MYOCLONUS
     Dosage: 2% (20MG/ML)
     Route: 042
     Dates: start: 20190702, end: 20190806
  21. VENTOLINE [SALBUTAMOL] [Concomitant]
     Active Substance: ALBUTEROL SULFATE
     Indication: ASTHMA
     Dates: start: 20190722, end: 20190731
  22. VIMPAT [Suspect]
     Active Substance: LACOSAMIDE
     Indication: MYOCLONUS
     Dosage: 400 MG DAILY
     Route: 042
     Dates: start: 20190705, end: 20190719

REACTIONS (2)
  - Off label use [Unknown]
  - Platelet count increased [Unknown]

NARRATIVE: CASE EVENT DATE: 20190705
